FAERS Safety Report 9670471 (Version 2)
Quarter: 2013Q4

REPORT INFORMATION
  Report Type: Spontaneous
  Country: CA (occurrence: CA)
  Receive Date: 20131106
  Receipt Date: 20131111
  Transmission Date: 20140711
  Serious: Yes (Other)
  Sender: FDA-Public Use
  Company Number: CA-ROCHE-1297410

PATIENT
  Sex: Female

DRUGS (1)
  1. CELLCEPT [Suspect]
     Indication: LUPUS NEPHRITIS
     Dosage: POSSIBLY RECEIVING 500MG, 2 X 2 DAYS
     Route: 048
     Dates: end: 20130930

REACTIONS (4)
  - Menorrhagia [Not Recovered/Not Resolved]
  - Gingival pain [Not Recovered/Not Resolved]
  - Vertigo [Not Recovered/Not Resolved]
  - Off label use [Unknown]
